FAERS Safety Report 6380967-5 (Version None)
Quarter: 2009Q3

REPORT INFORMATION
  Report Type: 
  Country: None (occurrence: None)
  Receive Date: 20090929
  Receipt Date: 20090917
  Transmission Date: 20100115
  Serious: Yes (Death, Hospitalization)
  Sender: FDA-Public Use
  Company Number: TW-SANOFI-SYNTHELABO-D01200502335

PATIENT
  Sex: Male
  Weight: 80 kg

DRUGS (6)
  1. BIPERIDEN HYDROCHLORIDE TAB [Concomitant]
  2. TIRAPAZAMINE [Concomitant]
  3. IMIPRAMINE [Concomitant]
  4. IRBESARTAN [Suspect]
     Indication: ATRIAL FIBRILLATION
     Dosage: 150 MG/DAY FOR 2 WEEKS FOLLOWING BY 300 MG/DAY
     Route: 048
     Dates: start: 20040521
  5. CLOPIDOGREL [Suspect]
     Indication: ATRIAL FIBRILLATION
     Route: 048
     Dates: start: 20040521
  6. ASPIRIN [Concomitant]
     Indication: ATRIAL FIBRILLATION
     Dosage: 100 MG
     Route: 048
     Dates: start: 20040521

REACTIONS (2)
  - RENAL FAILURE ACUTE [None]
  - UROSEPSIS [None]
